FAERS Safety Report 5831745-4 (Version None)
Quarter: 2008Q3

REPORT INFORMATION
  Report Type: 
  Country: None (occurrence: None)
  Receive Date: 20080803
  Receipt Date: 20080724
  Transmission Date: 20090109
  Serious: Yes (Hospitalization)
  Sender: FDA-Public Use
  Company Number: PHNU2008DE00864

PATIENT
  Sex: Male
  Weight: 64 kg

DRUGS (9)
  1. CLOZAPINE [Suspect]
     Indication: DEPRESSIVE DELUSION
     Dosage: 50 MG/DAY
     Route: 048
     Dates: start: 20070101
  2. CLOZAPINE [Suspect]
     Dosage: 37.5 MG/DAY
     Route: 048
     Dates: start: 20071001
  3. CLOZAPINE [Suspect]
     Dosage: 25 MG/DAY
     Route: 048
     Dates: start: 20071201, end: 20080128
  4. DIAZEPAM [Suspect]
     Indication: ANXIETY
     Dosage: 10 MG/DAY
     Route: 048
     Dates: start: 20060101, end: 20080220
  5. DIAZEPAM [Suspect]
     Indication: SLEEP DISORDER
     Dosage: UP TO 40 MG/DAY
     Route: 048
  6. ZOLOFT [Concomitant]
     Dosage: 100 MG/DAY
     Route: 048
  7. NEXIUM [Concomitant]
     Dosage: 20 MG/DAY
     Route: 048
  8. ASPIRIN [Concomitant]
     Dosage: 100 MG/DAY
     Route: 048
  9. TAMSULOSIN HCL [Concomitant]
     Dosage: 0.4 MG/DAY
     Route: 048

REACTIONS (4)
  - APHASIA [None]
  - DIZZINESS [None]
  - DRUG ADMINISTRATION ERROR [None]
  - DRUG LEVEL INCREASED [None]
